FAERS Safety Report 5095335-6 (Version None)
Quarter: 2006Q3

REPORT INFORMATION
  Report Type: 
  Country: None (occurrence: None)
  Receive Date: 20060731
  Receipt Date: 20060426
  Transmission Date: 20061208
  Serious: No
  Sender: FDA-Public Use
  Company Number: 2006PV012806

PATIENT
  Age: 64 Year
  Sex: Male
  Weight: 145.151 kg

DRUGS (10)
  1. BYETTA [Suspect]
     Indication: DIABETES MELLITUS NON-INSULIN-DEPENDENT
     Dosage: 10 + 5 MG MCG; BID; SC - SEE IMAGE
     Route: 058
     Dates: start: 20051101, end: 20051201
  2. BYETTA [Suspect]
     Indication: DIABETES MELLITUS NON-INSULIN-DEPENDENT
     Dosage: 10 + 5 MG MCG; BID; SC - SEE IMAGE
     Route: 058
     Dates: start: 20060101, end: 20060201
  3. BYETTA [Suspect]
     Indication: DIABETES MELLITUS NON-INSULIN-DEPENDENT
     Dosage: 10 + 5 MG MCG; BID; SC - SEE IMAGE
     Route: 058
     Dates: start: 20051201
  4. BYETTA [Suspect]
     Indication: DIABETES MELLITUS NON-INSULIN-DEPENDENT
     Dosage: 10 + 5 MG MCG; BID; SC - SEE IMAGE
     Route: 058
     Dates: start: 20060201
  5. GLIPIZIDE [Concomitant]
  6. METFORMIN [Concomitant]
  7. CENTRUM [Concomitant]
  8. CLONIDINE [Concomitant]
  9. FUROSEMIDE [Concomitant]
  10. ASPIRIN [Concomitant]

REACTIONS (6)
  - ANXIETY [None]
  - DEPRESSION [None]
  - DRUG EFFECT DECREASED [None]
  - PHOTOPSIA [None]
  - VISION BLURRED [None]
  - WEIGHT DECREASED [None]
